FAERS Safety Report 7722944-5 (Version None)
Quarter: 2011Q3

REPORT INFORMATION
  Report Type: 
  Country: None (occurrence: None)
  Receive Date: 20110901
  Receipt Date: 20110824
  Transmission Date: 20111222
  Serious: Yes (Other)
  Sender: FDA-Public Use
  Company Number: PHHY2011NL75754

PATIENT
  Sex: Female

DRUGS (2)
  1. EXJADE [Suspect]
     Dosage: 10 MG/KG
  2. EXJADE [Suspect]
     Dosage: UNK UKN, UNK
     Dates: start: 20110501

REACTIONS (5)
  - BLOOD CREATININE INCREASED [None]
  - LIVER DISORDER [None]
  - RENAL FAILURE [None]
  - SERUM FERRITIN INCREASED [None]
  - WEIGHT INCREASED [None]
